FAERS Safety Report 4969732-0 (Version None)
Quarter: 2006Q2

REPORT INFORMATION
  Report Type: 
  Country: None (occurrence: None)
  Receive Date: 20060411
  Receipt Date: 20051130
  Transmission Date: 20061013
  Serious: Yes (Hospitalization, Disabling)
  Sender: FDA-Public Use
  Company Number: US-SANOFI-SYNTHELABO-A03200503939

PATIENT
  Sex: Male
  Weight: 78 kg

DRUGS (6)
  1. UROXATRAL [Suspect]
     Indication: BENIGN PROSTATIC HYPERPLASIA
     Route: 048
     Dates: start: 20051108, end: 20051109
  2. UROXATRAL [Suspect]
     Indication: NOCTURIA
     Route: 048
     Dates: start: 20051108, end: 20051109
  3. LEVITRA [Concomitant]
     Route: 048
     Dates: start: 20051020, end: 20051021
  4. MAGNESIUM [Concomitant]
  5. MEDICINALPRODUCT NOT SPECIFIED BY SENDER [Concomitant]
  6. ASCORBIC ACID [Concomitant]

REACTIONS (16)
  - AORTIC ARTERIOSCLEROSIS [None]
  - AORTIC VALVE SCLEROSIS [None]
  - APATHY [None]
  - BALANCE DISORDER [None]
  - CATHETER SITE CELLULITIS [None]
  - CELLULITIS [None]
  - CEREBRAL INFARCTION [None]
  - CEREBROVASCULAR ACCIDENT [None]
  - CONFUSIONAL STATE [None]
  - DYSPHASIA [None]
  - INFLUENZA LIKE ILLNESS [None]
  - MITRAL VALVE INCOMPETENCE [None]
  - SEPTIC PHLEBITIS [None]
  - SINUSITIS [None]
  - THERAPY NON-RESPONDER [None]
  - TRICUSPID VALVE INCOMPETENCE [None]
